FAERS Safety Report 9143793 (Version 2)
Quarter: 2013Q1

REPORT INFORMATION
  Report Type: Spontaneous
  Country: US (occurrence: US)
  Receive Date: 20130306
  Receipt Date: 20130320
  Transmission Date: 20140127
  Serious: Yes (Hospitalization, Other)
  Sender: FDA-Public Use
  Company Number: US-ELI_LILLY_AND_COMPANY-US201303000218

PATIENT
  Age: 68 Year
  Sex: Female
  Weight: 90.7 kg

DRUGS (2)
  1. BYDUREON [Suspect]
     Indication: TYPE 2 DIABETES MELLITUS
     Dosage: 2 MG, WEEKLY (1/W)
     Route: 058
  2. ACTOS                                   /USA/ [Concomitant]
     Indication: TYPE 2 DIABETES MELLITUS
     Dosage: UNK
     Route: 048

REACTIONS (4)
  - Ankle fracture [Recovering/Resolving]
  - Post procedural complication [Unknown]
  - Hypoaesthesia [Recovering/Resolving]
  - Fall [Recovered/Resolved]
